FAERS Safety Report 7181123-3 (Version None)
Quarter: 2010Q4

REPORT INFORMATION
  Report Type: 
  Country: None (occurrence: None)
  Receive Date: 20101221
  Receipt Date: 20100418
  Transmission Date: 20110411
  Serious: No
  Sender: FDA-Public Use
  Company Number: US-AMGEN-KDL407021

PATIENT

DRUGS (2)
  1. ENBREL [Suspect]
     Indication: SCLERODERMA
     Dosage: 25 MG, QWK
     Dates: start: 20100411
  2. METHOTREXATE [Concomitant]
     Dosage: 25 MG, QWK
     Dates: start: 20090601

REACTIONS (5)
  - ERYTHEMA [None]
  - INJECTION SITE HAEMATOMA [None]
  - OEDEMA PERIPHERAL [None]
  - RASH MACULAR [None]
  - VOMITING [None]
